FAERS Safety Report 8020639-4 (Version None)
Quarter: 2012Q1

REPORT INFORMATION
  Report Type: 
  Country: None (occurrence: None)
  Receive Date: 20120103
  Receipt Date: 20111228
  Transmission Date: 20120608
  Serious: Yes (Life-Threatening, Hospitalization)
  Sender: FDA-Public Use
  Company Number: US-ASTRAZENECA-2011SE78540

PATIENT
  Age: 61 Year
  Sex: Female
  Weight: 63.5 kg

DRUGS (10)
  1. SEROQUEL [Suspect]
     Dosage: 100 MG EVERY MORNING AND TWO 100 MG TABLETS AT BEDTIME
     Route: 048
  2. CRESTOR [Suspect]
     Indication: BLOOD CHOLESTEROL ABNORMAL
     Route: 048
     Dates: start: 20000101
  3. SINGULAIR [Concomitant]
     Indication: MULTIPLE ALLERGIES
  4. SEROQUEL [Suspect]
     Indication: BIPOLAR DISORDER
     Route: 048
     Dates: start: 20110101
  5. SEROQUEL [Suspect]
     Dosage: 100 MG EVERY MORNING AND THREE 100 MG TABLETS AT BEDTIME FOR A TOTAL OF 400 MG PER DAY.
     Route: 048
  6. ADVAIR DISKUS 100/50 [Concomitant]
     Indication: MULTIPLE ALLERGIES
     Dosage: 250/50 MCG
     Route: 055
  7. CITALOPRAM HYDROBROMIDE [Concomitant]
     Indication: DEPRESSION
  8. SEROQUEL [Suspect]
     Dosage: 100 MG IN THE MORNING AND 200 MG AT NIGHT
     Route: 048
  9. NEXIUM [Suspect]
     Indication: GASTROOESOPHAGEAL REFLUX DISEASE
     Route: 048
  10. CLONAZEPAM [Concomitant]
     Indication: ANXIETY

REACTIONS (5)
  - INAPPROPRIATE SCHEDULE OF DRUG ADMINISTRATION [None]
  - LETHARGY [None]
  - AMNESIA [None]
  - SOMNOLENCE [None]
  - SUICIDE ATTEMPT [None]
